FAERS Safety Report 5113494-3 (Version None)
Quarter: 2006Q3

REPORT INFORMATION
  Report Type: 
  Country: None (occurrence: None)
  Receive Date: 20060921
  Receipt Date: 20060908
  Transmission Date: 20061208
  Serious: Yes (Other)
  Sender: FDA-Public Use
  Company Number: 2006110689

PATIENT
  Age: 46 Year
  Sex: Female

DRUGS (7)
  1. GEODON [Suspect]
     Indication: BIPOLAR DISORDER
     Dosage: 20 MG (20 MG,:  QD INTERVAL:  EVERY DAY), ORAL
     Route: 048
     Dates: start: 20051201
  2. LITHIUM (LITHIUM) [Suspect]
     Indication: DRUG USE FOR UNKNOWN INDICATION
  3. ALL OTHER THERAPEUTIC PRODUCTS (ALL OTHER THERAPEUTIC PRODUCTS) [Concomitant]
  4. PAXIL [Concomitant]
  5. SYNTHROID [Concomitant]
  6. VITAMINS (VITAMINS) [Concomitant]
  7. CALCIUM (CALCIUM) [Concomitant]

REACTIONS (3)
  - AGGRESSION [None]
  - DRUG LEVEL DECREASED [None]
  - RASH [None]
